FAERS Safety Report 7135322-7 (Version None)
Quarter: 2010Q4

REPORT INFORMATION
  Report Type: 
  Country: None (occurrence: None)
  Receive Date: 20101203
  Receipt Date: 20101123
  Transmission Date: 20110411
  Serious: Yes (Other)
  Sender: FDA-Public Use
  Company Number: B0687306A

PATIENT
  Sex: Female

DRUGS (2)
  1. REQUIP [Suspect]
     Indication: PARKINSON'S DISEASE
     Dosage: 24MG PER DAY
     Dates: start: 20100601, end: 20101001
  2. LEVODOPA [Concomitant]
     Indication: PARKINSON'S DISEASE

REACTIONS (2)
  - DELUSIONAL DISORDER, UNSPECIFIED TYPE [None]
  - HALLUCINATION, AUDITORY [None]
